FAERS Safety Report 8024516-4 (Version None)
Quarter: 2011Q4

REPORT INFORMATION
  Report Type: 
  Country: None (occurrence: None)
  Receive Date: 20111130
  Receipt Date: 20110705
  Transmission Date: 20120403
  Serious: Yes (Hospitalization)
  Sender: FDA-Public Use
  Company Number: 328005

PATIENT
  Age: 80 Year
  Sex: Female
  Weight: 79.4 kg

DRUGS (4)
  1. PRANDIN /00882701/ (DEFLAZACORT) [Concomitant]
  2. JANUVIA [Concomitant]
  3. NOVOLOG [Suspect]
     Indication: TYPE 2 DIABETES MELLITUS
     Dosage: 4-5 UNITS, DAILY, SUBCUTANEOUS
     Route: 058
     Dates: start: 20100101
  4. LEVEMIR (INSULIN DETEMIR) SOLUTION FOR INJECTION [Concomitant]

REACTIONS (2)
  - RASH GENERALISED [None]
  - INJECTION SITE REACTION [None]
